FAERS Safety Report 8260067-X (Version None)
Quarter: 2012Q2

REPORT INFORMATION
  Report Type: 
  Country: None (occurrence: None)
  Receive Date: 20120404
  Receipt Date: 20120321
  Transmission Date: 20120825
  Serious: Yes (Other)
  Sender: FDA-Public Use
  Company Number: CHPA2012US005614

PATIENT
  Sex: Female

DRUGS (1)
  1. EXCEDRIN EXTRA STRENGTH TABLETS [Suspect]
     Indication: HEADACHE
     Dosage: 6-9 DF, QD
     Route: 048
     Dates: end: 20120201

REACTIONS (7)
  - INCORRECT DRUG ADMINISTRATION DURATION [None]
  - DRUG DEPENDENCE [None]
  - HEADACHE [None]
  - REBOUND EFFECT [None]
  - OSTEOARTHRITIS [None]
  - TENDONITIS [None]
  - OVERDOSE [None]
